FAERS Safety Report 13594521 (Version 1)
Quarter: 2017Q2

REPORT INFORMATION
  Report Type: Spontaneous
  Country: JP (occurrence: JP)
  Receive Date: 20170530
  Receipt Date: 20170530
  Transmission Date: 20170830
  Serious: Yes (Hospitalization)
  Sender: FDA-Public Use
  Company Number: JP-DSJP-DSJ-2017-116236

PATIENT

DRUGS (3)
  1. OLMETEC [Suspect]
     Active Substance: OLMESARTAN MEDOXOMIL
     Indication: CARDIAC FAILURE
     Dosage: 10MG/DAY
     Route: 065
  2. METILDIGOXIN [Concomitant]
     Active Substance: METILDIGOXIN
     Indication: CARDIAC FAILURE
     Dosage: 0.05MG/DAY
     Route: 065
  3. TRICHLORMETHIAZIDE [Suspect]
     Active Substance: TRICHLORMETHIAZIDE
     Indication: CARDIAC FAILURE
     Dosage: 2MG/DAY
     Route: 065

REACTIONS (3)
  - Hyponatraemia [Recovering/Resolving]
  - Viral upper respiratory tract infection [Unknown]
  - Cardiac failure acute [Unknown]
